FAERS Safety Report 25981586 (Version 1)
Quarter: 2025Q4

REPORT INFORMATION
  Report Type: Spontaneous
  Country: CN (occurrence: CN)
  Receive Date: 20251030
  Receipt Date: 20251030
  Transmission Date: 20260117
  Serious: Yes (Other)
  Sender: ABBVIE
  Company Number: CN-ABBVIE-6521951

PATIENT
  Age: 68 Year
  Sex: Male

DRUGS (3)
  1. VENETOCLAX [Suspect]
     Active Substance: VENETOCLAX
     Indication: Targeted cancer therapy
     Dosage: 0.1 GRAM
     Route: 048
     Dates: start: 20250726, end: 20250822
  2. AZACITIDINE [Suspect]
     Active Substance: AZACITIDINE
     Indication: Chemotherapy
     Dosage: 135 MILLIGRAM INTRAVENOUS DRIP
     Route: 065
     Dates: start: 20250726, end: 20250801
  3. VORICONAZOLE [Concomitant]
     Active Substance: VORICONAZOLE
     Indication: Targeted cancer therapy

REACTIONS (6)
  - Cerebral infarction [Recovering/Resolving]
  - Pyrexia [Recovering/Resolving]
  - Respiratory tract infection [Recovering/Resolving]
  - Cardiac failure acute [Recovering/Resolving]
  - Myelosuppression [Recovering/Resolving]
  - Gastrointestinal haemorrhage [Recovering/Resolving]

NARRATIVE: CASE EVENT DATE: 20250731
